FAERS Safety Report 14747403 (Version 2)
Quarter: 2018Q2

REPORT INFORMATION
  Report Type: Spontaneous
  Country: SI (occurrence: SI)
  Receive Date: 20180411
  Receipt Date: 20180413
  Transmission Date: 20180711
  Serious: Yes (Other)
  Sender: FDA-Public Use
  Company Number: SI-PFIZER INC-2018145939

PATIENT
  Age: 81 Year
  Sex: Male
  Weight: 98 kg

DRUGS (16)
  1. PANTOPRAZOLE [Suspect]
     Active Substance: PANTOPRAZOLE
     Dosage: 20 MG, QD
     Route: 065
  2. TENZOPRIL [Suspect]
     Active Substance: ZOFENOPRIL
     Dosage: 7.5 MG, Q12H
     Route: 016
  3. EDEMID [Suspect]
     Active Substance: FUROSEMIDE
     Dosage: 165 MG, BID (125 MG IN THE MORNING AND 40MG IN THE AFTERNOON )
     Route: 065
  4. EDEMID [Suspect]
     Active Substance: FUROSEMIDE
     Dosage: 60 MG, QD (AT 40MG IN THE MORNING AND 20MG IN THE AFTERNOON)
     Route: 065
  5. SOBYCOR [Suspect]
     Active Substance: BISOPROLOL FUMARATE
     Dosage: 5 MG, QD
     Route: 065
  6. NITRO-DUR [Suspect]
     Active Substance: NITROGLYCERIN
     Dosage: 0.4MG/H EVERY NIGHT
     Route: 065
  7. ENTRESTO [Suspect]
     Active Substance: SACUBITRIL\VALSARTAN
     Dosage: 50 MG, Q12H
     Route: 065
  8. ASPIRIN. [Suspect]
     Active Substance: ASPIRIN
     Dosage: 100 MG, UNK (AS NEEDED)
     Route: 065
  9. TENZOPRIL [Suspect]
     Active Substance: ZOFENOPRIL
     Dosage: 7.5 MG, QD
     Route: 065
  10. EDEMID [Suspect]
     Active Substance: FUROSEMIDE
     Dosage: UNK, BID
     Route: 065
  11. EUTHYROX [Suspect]
     Active Substance: LEVOTHYROXINE SODIUM
     Dosage: 150 MG, QD
     Route: 065
  12. MAREVAN [Suspect]
     Active Substance: WARFARIN SODIUM
     Dosage: UNK UNK, QD
     Route: 065
  13. ALLOPURINOL. [Suspect]
     Active Substance: ALLOPURINOL
     Dosage: UNK
     Route: 065
  14. ALPHA D3 [Suspect]
     Active Substance: ALFACALCIDOL
     Dosage: UNK
     Route: 065
  15. NEPHROTRANS [Suspect]
     Active Substance: SODIUM BICARBONATE
     Dosage: 1 G, 2X/DAY
     Route: 065
  16. PLIVIT D3 [Suspect]
     Active Substance: CHOLECALCIFEROL
     Dosage: 70 GTT, 1/WEEK
     Route: 065

REACTIONS (16)
  - Arrhythmia [Unknown]
  - Acute myocardial infarction [Unknown]
  - Macrocytosis [Unknown]
  - Myeloperoxidase deficiency [Unknown]
  - Oedema [Unknown]
  - Atrial fibrillation [Unknown]
  - Hypochromasia [Unknown]
  - Chronic kidney disease [Unknown]
  - Anaemia macrocytic [Unknown]
  - Right ventricular failure [Not Recovered/Not Resolved]
  - Hypothyroidism [Unknown]
  - Vein disorder [Unknown]
  - Somnolence [Unknown]
  - Folate deficiency [Unknown]
  - Myocardial ischaemia [Unknown]
  - Anisocytosis [Unknown]
